FAERS Safety Report 8831112 (Version 1)
Quarter: 2012Q4

REPORT INFORMATION
  Report Type: 
  Country: US (occurrence: US)
  Receive Date: 20121002
  Receipt Date: 20121002
  Transmission Date: 20130627
  Serious: Yes (Hospitalization, Other)
  Sender: FDA-Public Use
  Company Number: US-009507513-1210USA000350

PATIENT

DRUGS (2)
  1. JANUMET [Suspect]
     Route: 048
  2. VICTOZA [Suspect]
     Dosage: 6 mg/mL
     Route: 058

REACTIONS (1)
  - Pancreatitis [Unknown]
